FAERS Safety Report 7860545-9 (Version None)
Quarter: 2011Q4

REPORT INFORMATION
  Report Type: 
  Country: None (occurrence: None)
  Receive Date: 20111027
  Receipt Date: 20111021
  Transmission Date: 20120403
  Serious: No
  Sender: FDA-Public Use
  Company Number: US-PFIZER INC-2011238437

PATIENT
  Sex: Male

DRUGS (1)
  1. VIAGRA [Suspect]
     Dosage: 100 MG, TAKE 1/2 TO 1 TAB, PRIOR TO SEXUAL ACTIVITY
     Route: 048
     Dates: start: 20110830

REACTIONS (1)
  - DRUG INEFFECTIVE [None]
